FAERS Safety Report 8285553-8 (Version None)
Quarter: 2012Q2

REPORT INFORMATION
  Report Type: 
  Country: None (occurrence: None)
  Receive Date: 20120413
  Receipt Date: 20120125
  Transmission Date: 20120825
  Serious: No
  Sender: FDA-Public Use
  Company Number: US-ASTRAZENECA-2011SE57070

PATIENT
  Age: 57 Year
  Sex: Female
  Weight: 69.9 kg

DRUGS (2)
  1. NEXIUM [Suspect]
     Indication: CHEST PAIN
     Dosage: AT NIGHT
     Route: 048
  2. NEUROLOGY MEDICINES [Concomitant]

REACTIONS (4)
  - JOINT SWELLING [None]
  - JOINT STIFFNESS [None]
  - OEDEMA PERIPHERAL [None]
  - OFF LABEL USE [None]
